FAERS Safety Report 8935537 (Version 1)
Quarter: 2012Q4

REPORT INFORMATION
  Report Type: 
  Country: US (occurrence: US)
  Receive Date: 20121130
  Receipt Date: 20121130
  Transmission Date: 20130627
  Serious: No
  Sender: FDA-Public Use
  Company Number: US-BAYER-2012-123981

PATIENT
  Age: 79 Year
  Sex: Male
  Weight: 104 kg

DRUGS (6)
  1. ALEVE CAPLET/TABLET,MIDOL EXTENDED RELIEF CAPLET [Suspect]
     Indication: ARTHRITIS
     Dosage: 5 df 4-5 hours UNK
     Route: 048
     Dates: start: 20121019
  2. B12 [Concomitant]
  3. MULTIPLE VITAMINS [Concomitant]
  4. BAYER ASPIRIN REGIMEN ADULT LOW STRENGTH [Concomitant]
     Indication: MYOCARDIAL INFARCT PROPHYLAXIS
  5. ANTIHYPERTENSIVES [Concomitant]
  6. GLAUCOMA MEDICATION [Concomitant]

REACTIONS (4)
  - Dyspepsia [None]
  - Incorrect drug administration duration [None]
  - Gastric disorder [None]
  - Drug ineffective [None]
